FAERS Safety Report 8314735-1 (Version None)
Quarter: 2012Q2

REPORT INFORMATION
  Report Type: 
  Country: None (occurrence: None)
  Receive Date: 20120426
  Receipt Date: 20120423
  Transmission Date: 20120825
  Serious: Yes (Death, Hospitalization)
  Sender: FDA-Public Use
  Company Number: AU-B.I. PHARMACEUTICALS,INC./RIDGEFIELD-2012-AU-00671AU

PATIENT
  Sex: Male

DRUGS (20)
  1. PRADAXA [Suspect]
     Indication: ATRIAL FIBRILLATION
  2. NITROLINGUAL [Concomitant]
     Dosage: PRN
     Route: 060
  3. LIQUIFILM [Concomitant]
     Route: 061
  4. CHOLECALCIFEROL [Concomitant]
     Dosage: 1000 U
  5. PRADAXA [Suspect]
     Indication: CEREBROVASCULAR ACCIDENT PROPHYLAXIS
     Dosage: 220 MG
     Dates: start: 20110727
  6. ADVANTAN [Concomitant]
     Route: 061
  7. PANAMAX [Concomitant]
  8. FUROSEMIDE [Concomitant]
     Dosage: 40 MG
  9. CODALGIN FORTE [Concomitant]
  10. MOVICOL [Concomitant]
     Route: 048
  11. NYSTATIN [Concomitant]
     Route: 048
  12. AMLODIPINE [Concomitant]
     Dosage: 5 MG
  13. PEPCIDINE [Concomitant]
     Dosage: 40 MG
  14. SIMVASTATIN [Concomitant]
     Dosage: 40 MG
  15. PREDNISOLONE [Concomitant]
     Dosage: 7.5 MG
  16. VYTORIN [Concomitant]
     Dosage: 10/40
  17. PANADOL OSTEO [Concomitant]
  18. SOLPRIN [Concomitant]
     Dosage: 150 MG
  19. LISINOPRIL [Concomitant]
  20. BETNOVATE [Concomitant]
     Route: 061

REACTIONS (7)
  - ARRHYTHMIA [None]
  - ACUTE MYOCARDIAL INFARCTION [None]
  - PULMONARY HAEMORRHAGE [None]
  - CHEST PAIN [None]
  - ACUTE PULMONARY OEDEMA [None]
  - PNEUMONIA [None]
  - DYSPNOEA [None]
